FAERS Safety Report 16545082 (Version 2)
Quarter: 2019Q3

REPORT INFORMATION
  Report Type: Spontaneous
  Country: US (occurrence: US)
  Receive Date: 20190709
  Receipt Date: 20190903
  Transmission Date: 20191004
  Serious: No
  Sender: FDA-Public Use
  Company Number: US-BAYER-2019-125115

PATIENT

DRUGS (1)
  1. ALEVE [Suspect]
     Active Substance: NAPROXEN SODIUM
     Indication: ARTHRITIS
     Dosage: 2 DF, OM

REACTIONS (1)
  - Incorrect product administration duration [Unknown]
